FAERS Safety Report 18230172 (Version 3)
Quarter: 2021Q2

REPORT INFORMATION
  Report Type: Spontaneous
  Country: US (occurrence: US)
  Receive Date: 20200904
  Receipt Date: 20210624
  Transmission Date: 20210717
  Serious: No
  Sender: FDA-Public Use
  Company Number: US-DECIPHERA PHARMACEUTICALS LLC-2020-US-000004

PATIENT
  Age: 79 Year
  Sex: Female

DRUGS (27)
  1. BCQ [Concomitant]
     Indication: FUNCTIONAL GASTROINTESTINAL DISORDER
  2. QINLOCK [Suspect]
     Active Substance: RIPRETINIB
     Dosage: 150 MILLIGRAM, QD
     Route: 048
  3. CO Q 10 [UBIDECARENONE] [Concomitant]
     Indication: ASTHENIA
  4. MELATONIN [Concomitant]
     Active Substance: MELATONIN
     Indication: BLOOD PRESSURE MEASUREMENT
  5. QINLOCK [Suspect]
     Active Substance: RIPRETINIB
     Dosage: 150 MILLIGRAM, QD
     Route: 048
  6. BCQ [Concomitant]
     Indication: CONNECTIVE TISSUE DISORDER
  7. VITAMIN D3 K2 [Concomitant]
     Indication: BLOOD GLUCOSE ABNORMAL
  8. OMEGA NORWEGIAN GOLD [Concomitant]
     Dosage: 1 SOFT GEL
     Route: 065
  9. MELATONIN [Concomitant]
     Active Substance: MELATONIN
     Indication: GASTROINTESTINAL MOTILITY DISORDER
     Dosage: 2 CAP
     Route: 065
  10. QINLOCK [Suspect]
     Active Substance: RIPRETINIB
     Dosage: UNK
     Route: 048
     Dates: start: 20200627
  11. QINLOCK [Suspect]
     Active Substance: RIPRETINIB
     Dosage: 150 MILLIGRAM, QD
     Route: 048
  12. VITAMIN D3 K2 [Concomitant]
     Indication: CARDIAC DISORDER
  13. PHYTOMAX [Concomitant]
     Indication: BLOOD GLUCOSE ABNORMAL
     Dosage: 1 TAB
     Route: 065
  14. PHYTOMAX [Concomitant]
     Indication: CARDIOVASCULAR EVENT PROPHYLAXIS
  15. MELATONIN [Concomitant]
     Active Substance: MELATONIN
     Indication: IMPAIRED HEALING
  16. MELATONIN [Concomitant]
     Active Substance: MELATONIN
     Indication: PULSE ABNORMAL
  17. QINLOCK [Suspect]
     Active Substance: RIPRETINIB
     Indication: GASTROINTESTINAL STROMAL TUMOUR
     Dosage: 150 MILLIGRAM, QD
     Route: 048
     Dates: start: 20200529
  18. VITAMIN D3 K2 [Concomitant]
     Indication: BONE DISORDER
     Dosage: 1 CAP
     Route: 065
  19. MAGNESIUM MALATE. [Concomitant]
     Active Substance: MAGNESIUM MALATE
     Indication: CONSTIPATION
     Dosage: 1250 MILLIGRAM, 2 CAP
     Route: 065
  20. MAGNESIUM MALATE. [Concomitant]
     Active Substance: MAGNESIUM MALATE
     Indication: INSOMNIA
  21. CO Q 10 [UBIDECARENONE] [Concomitant]
     Indication: ANTIOXIDANT THERAPY
     Dosage: 1 SOFT GEL
     Route: 065
  22. MELATONIN [Concomitant]
     Active Substance: MELATONIN
     Indication: NEURODEGENERATIVE DISORDER
  23. MAGNESIUM MALATE. [Concomitant]
     Active Substance: MAGNESIUM MALATE
     Indication: ORAL BACTERIAL INFECTION
  24. KEYTRUDA [Suspect]
     Active Substance: PEMBROLIZUMAB
     Indication: GASTROINTESTINAL STROMAL TUMOUR
     Dosage: UNK
     Route: 065
  25. PROBIOTICA [Concomitant]
     Active Substance: PROBIOTICS NOS
     Indication: GASTROINTESTINAL DISORDER
     Dosage: UNK
     Route: 065
  26. BCQ [Concomitant]
     Indication: INFLAMMATION
     Route: 065
  27. VITAMIN D3 K2 [Concomitant]
     Indication: NEOPLASM MALIGNANT

REACTIONS (19)
  - Erythema [Unknown]
  - Skin irritation [Unknown]
  - Hair texture abnormal [Unknown]
  - Constipation [Unknown]
  - Diarrhoea [Unknown]
  - Squamous cell carcinoma of skin [Unknown]
  - Stress [Unknown]
  - Alopecia [Recovering/Resolving]
  - Muscle spasms [Unknown]
  - Ear pruritus [Not Recovered/Not Resolved]
  - Product coating issue [Unknown]
  - Abdominal distension [Unknown]
  - Myalgia [Unknown]
  - Choking sensation [Unknown]
  - Rash [Not Recovered/Not Resolved]
  - Neoplasm progression [Unknown]
  - Flatulence [Unknown]
  - Dry skin [Unknown]
  - Pruritus [Unknown]

NARRATIVE: CASE EVENT DATE: 20200602
